FAERS Safety Report 14203116 (Version 1)
Quarter: 2017Q4

REPORT INFORMATION
  Report Type: Report from Study
  Country: US (occurrence: US)
  Receive Date: 20171120
  Receipt Date: 20171120
  Transmission Date: 20180321
  Serious: Yes (Death, Hospitalization, Other)
  Sender: FDA-Public Use
  Company Number: US-ROCHE-1010151

PATIENT

DRUGS (2)
  1. MYCOPHENOLATE MOFETIL. [Suspect]
     Active Substance: MYCOPHENOLATE MOFETIL
     Indication: PROPHYLAXIS AGAINST TRANSPLANT REJECTION
     Route: 065
  2. TACROLIMUS. [Suspect]
     Active Substance: TACROLIMUS
     Indication: PROPHYLAXIS AGAINST TRANSPLANT REJECTION
     Dosage: DOSE OF 0.1 MG/KG TWICE DAILY, WITH AN INITIAL TARGET TROUGH LEVEL (DURING THE FIRST 2 MO POST-TRANS
     Route: 065

REACTIONS (15)
  - Urinary tract infection [Unknown]
  - Pneumonia [Unknown]
  - Peritonitis [Unknown]
  - Herpes zoster [Unknown]
  - Infection [Fatal]
  - Wound dehiscence [Unknown]
  - Cytomegalovirus viraemia [Unknown]
  - Gastrointestinal disorder [Unknown]
  - Wound infection [Unknown]
  - Sepsis [Unknown]
  - Cytomegalovirus infection [Unknown]
  - Cellulitis [Unknown]
  - Leukopenia [Unknown]
  - Prostatic abscess [Unknown]
  - Lymphocele [Unknown]
